FAERS Safety Report 22026542 (Version 1)
Quarter: 2023Q1

REPORT INFORMATION
  Report Type: Other
  Country: US (occurrence: None)
  Receive Date: 20230223
  Receipt Date: 20230223
  Transmission Date: 20230418
  Serious: Yes (Other)
  Sender: FDA-Public Use
  Company Number: US-ROCHE-3291493

PATIENT
  Age: 60 Year
  Sex: Male

DRUGS (10)
  1. RITUXIMAB [Suspect]
     Active Substance: RITUXIMAB
     Indication: Follicular lymphoma
     Dosage: 4 WEEKLY DOSES FOLLOWED BY RITUXIMAB MAINTENANCE FOR A TOTAL OF 2 YEARS
     Route: 065
  2. RITUXIMAB [Suspect]
     Active Substance: RITUXIMAB
     Dosage: 2 CYCLES
     Route: 065
  3. ADRIAMYCIN [Concomitant]
     Active Substance: DOXORUBICIN HYDROCHLORIDE
  4. BRENTUXIMAB [Concomitant]
     Active Substance: BRENTUXIMAB
     Dosage: TOTAL OF 4 CYCLES
  5. VINBLASTINE [Concomitant]
     Active Substance: VINBLASTINE
  6. DACARBAZINE [Concomitant]
     Active Substance: DACARBAZINE
  7. BENDAMUSTINE [Concomitant]
     Active Substance: BENDAMUSTINE
     Dosage: TOTAL OF 4 CYCLES
  8. IFOSFAMIDE [Concomitant]
     Active Substance: IFOSFAMIDE
     Dosage: 2 CYCLES
  9. CYCLOPHOSPHAMIDE [Concomitant]
     Active Substance: CYCLOPHOSPHAMIDE
     Dosage: 2 CYCLES
  10. ETOPOSIDE [Concomitant]
     Active Substance: ETOPOSIDE
     Dosage: 2 CYCLES

REACTIONS (1)
  - Disease progression [Unknown]
